FAERS Safety Report 8182413-8 (Version None)
Quarter: 2012Q1

REPORT INFORMATION
  Report Type: 
  Country: None (occurrence: None)
  Receive Date: 20120304
  Receipt Date: 20120224
  Transmission Date: 20120608
  Serious: Yes (Hospitalization)
  Sender: FDA-Public Use
  Company Number: GR-ABBOTT-11P-066-0734923-00

PATIENT
  Age: 3 Year

DRUGS (5)
  1. CLARITHROMYCIN [Suspect]
     Indication: ASTHMA
  2. ALBUTEROL SULFATE AUTOHALER [Suspect]
     Indication: ASTHMA
  3. FLUTICASONE PROPIONATE [Suspect]
     Indication: PRODUCT USED FOR UNKNOWN INDICATION
  4. METHYLPREDNISOLONE [Suspect]
     Indication: ASTHMA
  5. CORTISONE ACETATE [Concomitant]
     Indication: ASTHMA

REACTIONS (1)
  - GASTROENTERITIS ROTAVIRUS [None]
